FAERS Safety Report 8074467-4 (Version None)
Quarter: 2012Q1

REPORT INFORMATION
  Report Type: 
  Country: None (occurrence: None)
  Receive Date: 20120126
  Receipt Date: 20120120
  Transmission Date: 20120608
  Serious: Yes (Hospitalization)
  Sender: FDA-Public Use
  Company Number: GB-PFIZER INC-2011195976

PATIENT
  Age: 74 Year
  Sex: Male

DRUGS (7)
  1. ACETYLSALICYLIC ACID [Concomitant]
  2. ZOCOR [Concomitant]
     Dosage: UNK
     Dates: start: 20071214
  3. ALISKIREN [Suspect]
     Dosage: 100 MG, UNK
     Route: 048
     Dates: start: 20080311, end: 20080411
  4. AMLODIPINE [Concomitant]
     Dosage: UNK
     Dates: start: 20080212
  5. SERC [Concomitant]
     Dosage: UNK
     Dates: start: 19970519
  6. CLOPIDOGREL [Concomitant]
  7. RAMIPRIL [Suspect]
     Indication: HYPERTENSION
     Dosage: 10 MG, UNK
     Route: 048
     Dates: start: 20080311, end: 20080401

REACTIONS (1)
  - ACUTE MYOCARDIAL INFARCTION [None]
